FAERS Safety Report 10696154 (Version 3)
Quarter: 2015Q3

REPORT INFORMATION
  Report Type: Spontaneous
  Country: US (occurrence: US)
  Receive Date: 20150107
  Receipt Date: 20150706
  Transmission Date: 20151125
  Serious: Yes (Other)
  Sender: FDA-Public Use
  Company Number: US-BAYER-2015-001658

PATIENT
  Age: 42 Year
  Sex: Female
  Weight: 56.69 kg

DRUGS (2)
  1. MIRENA [Suspect]
     Active Substance: LEVONORGESTREL
     Indication: MENORRHAGIA
     Dosage: 20 MCG/24HR, CONT
     Route: 015
     Dates: start: 20100517, end: 201208
  2. MIRENA [Suspect]
     Active Substance: LEVONORGESTREL
     Indication: CONTRACEPTION
     Dosage: 20 MCG/24HR, CONT
     Route: 015
     Dates: start: 20050502, end: 20100517

REACTIONS (9)
  - Device dislocation [None]
  - Emotional distress [None]
  - Anxiety [None]
  - Embedded device [None]
  - Depression [None]
  - Abdominal pain [None]
  - Uterine leiomyoma [None]
  - Injury [None]
  - Genital haemorrhage [None]

NARRATIVE: CASE EVENT DATE: 2008
